FAERS Safety Report 7486302-3 (Version None)
Quarter: 2011Q2

REPORT INFORMATION
  Report Type: 
  Country: None (occurrence: None)
  Receive Date: 20110517
  Receipt Date: 20110511
  Transmission Date: 20111010
  Serious: Yes (Other)
  Sender: FDA-Public Use
  Company Number: BR-PFIZER INC-2011065337

PATIENT
  Age: 92 Year
  Sex: Male
  Weight: 74 kg

DRUGS (10)
  1. TOLTERODINE TARTRATE [Suspect]
     Indication: URINARY INCONTINENCE
  2. DIAMICRON [Concomitant]
     Indication: DIABETES MELLITUS
     Dosage: UNK
     Dates: start: 20060301
  3. FUROSEMIDE [Concomitant]
     Dosage: UNK
     Dates: start: 20080301
  4. FRONTAL [Concomitant]
     Indication: ANXIETY
  5. MAREVAN ^NYCOMED^ [Concomitant]
     Dosage: 4 TABLETS WEEKLY
     Dates: start: 20060301
  6. SINERGEN [Concomitant]
     Indication: HYPERTENSION
     Dosage: UNK
  7. VENALOT [Concomitant]
     Dosage: 2 TABLETS DAILY
  8. TOLTERODINE TARTRATE [Suspect]
     Indication: HYPERTONIC BLADDER
     Dosage: 4 MG, 1X/DAY (AT NIGTH)
     Route: 048
     Dates: start: 20110302, end: 20110301
  9. FRONTAL [Concomitant]
     Indication: STRESS
     Dosage: UNK
     Dates: start: 20090301
  10. ATENOLOL [Concomitant]
     Indication: HYPERTENSION
     Dosage: UNK

REACTIONS (1)
  - SYNCOPE [None]
